FAERS Safety Report 12012880 (Version 1)
Quarter: 2016Q1

REPORT INFORMATION
  Report Type: Report from Study
  Country: US (occurrence: US)
  Receive Date: 20160205
  Receipt Date: 20160205
  Transmission Date: 20160526
  Serious: Yes (Hospitalization)
  Sender: FDA-Public Use
  Company Number: US-MALLINCKRODT-T201600233

PATIENT
  Age: 60 Year
  Sex: Male
  Weight: 98 kg

DRUGS (7)
  1. ASPIRIN. [Concomitant]
     Active Substance: ASPIRIN
     Indication: PROPHYLAXIS
     Dosage: 81 MG ONCE DAILY
     Route: 048
     Dates: start: 201103
  2. METOPROLOL. [Concomitant]
     Active Substance: METOPROLOL
     Indication: HYPERTENSION
     Dosage: 50 MG ONCE DAILY
     Route: 048
     Dates: start: 201103
  3. HYDROCODONE/ACETAMINOPHEN [Suspect]
     Active Substance: ACETAMINOPHEN\HYDROCODONE
     Indication: BACK PAIN
     Dosage: 7.5 / 325 MG AS NEEDED
     Route: 048
     Dates: start: 20150419
  4. HYDROCODONE/ACETAMINOPHEN [Suspect]
     Active Substance: ACETAMINOPHEN\HYDROCODONE
     Indication: INTERVERTEBRAL DISC PROTRUSION
     Dosage: 7.5 / 325 MG AS NEEDED
     Route: 048
     Dates: start: 200512
  5. AMIODARONE [Concomitant]
     Active Substance: AMIODARONE
     Indication: VENTRICULAR FIBRILLATION
     Dosage: 400 MG; QD
     Dates: start: 201103
  6. CLOPIDOGREL [Concomitant]
     Active Substance: CLOPIDOGREL BISULFATE
     Dosage: 75 MG ONCE DAILY
     Route: 048
     Dates: start: 201103
  7. ROLAIDS [Concomitant]
     Active Substance: CALCIUM CARBONATE\MAGNESIUM HYDROXIDE
     Indication: GASTROOESOPHAGEAL REFLUX DISEASE
     Dosage: AS NEEDED
     Dates: start: 201103

REACTIONS (2)
  - Chest pain [Recovered/Resolved]
  - Nausea [Recovered/Resolved]

NARRATIVE: CASE EVENT DATE: 20150419
